FAERS Safety Report 7807564-6 (Version None)
Quarter: 2011Q4

REPORT INFORMATION
  Report Type: 
  Country: None (occurrence: None)
  Receive Date: 20111011
  Receipt Date: 20111010
  Transmission Date: 20120403
  Serious: Yes (Hospitalization)
  Sender: FDA-Public Use
  Company Number: US-GLAXOSMITHKLINE-B0754383A

PATIENT
  Age: 57 Year
  Sex: Male

DRUGS (9)
  1. PROZAC [Concomitant]
  2. PRAVACHOL [Concomitant]
  3. PEPCID [Concomitant]
  4. NOVOLIN 70/30 [Concomitant]
  5. LOPRESSOR [Concomitant]
  6. ALTACE [Concomitant]
  7. TRICOR [Concomitant]
  8. AVANDIA [Suspect]
     Indication: DIABETES MELLITUS
     Dosage: 8MG PER DAY
     Route: 048
     Dates: start: 20040101, end: 20070101
  9. NEURONTIN [Concomitant]

REACTIONS (1)
  - MYOCARDIAL INFARCTION [None]
